FAERS Safety Report 4731059-X (Version None)
Quarter: 2005Q3

REPORT INFORMATION
  Report Type: 
  Country: None (occurrence: None)
  Receive Date: 20050726
  Receipt Date: 20040303
  Transmission Date: 20060218
  Serious: Yes (Life-Threatening, Hospitalization)
  Sender: FDA-Public Use
  Company Number: 04GER0083

PATIENT
  Age: 76 Year
  Sex: Male

DRUGS (2)
  1. INJ TIROFIBAN HCL(TIROFIBAN HYDROCHLORIDE) (INJECTION) [Suspect]
     Indication: MYOCARDIAL INFARCTION
     Dates: start: 20040227, end: 20040228
  2. AGGRASTAT [Suspect]
     Dosage: N/A, INTRAVENOUS
     Route: 042
     Dates: start: 20040227, end: 20040228

REACTIONS (2)
  - SKIN HAEMORRHAGE [None]
  - THROMBOCYTOPENIA [None]
